FAERS Safety Report 5744743-6 (Version None)
Quarter: 2008Q2

REPORT INFORMATION
  Report Type: 
  Country: None (occurrence: None)
  Receive Date: 20080520
  Receipt Date: 20080514
  Transmission Date: 20081010
  Serious: Yes (Other)
  Sender: FDA-Public Use
  Company Number: PHEH2007US07627

PATIENT
  Age: 62 Year
  Sex: Female
  Weight: 92.063 kg

DRUGS (22)
  1. ESTRADERM [Suspect]
     Indication: HORMONE REPLACEMENT THERAPY
     Dosage: 0.05 MG/DAY, TWICE WEEKLY
     Route: 062
     Dates: start: 19550101, end: 19941020
  2. METFORMIN HCL [Concomitant]
  3. GLIPIZIDE [Concomitant]
  4. MECLIZINE [Concomitant]
  5. DETROL [Concomitant]
  6. ATENOLOL [Concomitant]
  7. RANITIDINE [Concomitant]
  8. NEURONTIN [Concomitant]
  9. LIPITOR [Concomitant]
  10. POTASSIUM CHLORIDE [Concomitant]
  11. ASPIRIN [Concomitant]
  12. CALTRATE [Concomitant]
  13. PREMARIN [Suspect]
     Indication: HORMONE REPLACEMENT THERAPY
     Dosage: 1.25 MG TO .625 MG, UNK
     Route: 048
     Dates: start: 19821201, end: 19870601
  14. PROVERA [Suspect]
     Indication: MENOPAUSAL SYMPTOMS
     Route: 048
     Dates: start: 19840601, end: 19941020
  15. NORLUTATE [Suspect]
     Indication: MENOPAUSAL SYMPTOMS
     Dosage: 6 MG, UNK
     Route: 048
     Dates: start: 19821201, end: 19840601
  16. MEVACOR [Concomitant]
     Dosage: 20 MG, UNK
  17. ENTEX SOLUTION [Concomitant]
  18. LEVAQUIN [Concomitant]
  19. AMBIEN [Concomitant]
  20. ASPIRIN [Concomitant]
  21. NITROGLYCERIN [Concomitant]
     Dosage: UNK, PRN
  22. VALIUM [Concomitant]
     Dosage: UNK, PRN

REACTIONS (45)
  - ABDOMINAL PAIN [None]
  - ANXIETY [None]
  - BONE DENSITOMETRY [None]
  - BREAST CANCER [None]
  - BRONCHITIS [None]
  - CAROTID ARTERY DISEASE [None]
  - CATARACT OPERATION [None]
  - CATHETERISATION CARDIAC [None]
  - CORONARY ARTERY DISEASE [None]
  - DIABETES MELLITUS [None]
  - DIABETIC NEPHROPATHY [None]
  - DIVERTICULUM [None]
  - DYSPNOEA [None]
  - EAR DISORDER [None]
  - EYE SWELLING [None]
  - FALL [None]
  - FLUID RETENTION [None]
  - FOOT FRACTURE [None]
  - HYPERLIPIDAEMIA [None]
  - HYPERTENSION [None]
  - INCONTINENCE [None]
  - INTERVERTEBRAL DISC DEGENERATION [None]
  - INTERVERTEBRAL DISC OPERATION [None]
  - ISCHAEMIA [None]
  - LUMBAR SPINAL STENOSIS [None]
  - LUMBAR VERTEBRAL FRACTURE [None]
  - MALIGNANT BREAST LUMP REMOVAL [None]
  - NEPHROSCLEROSIS [None]
  - NIGHTMARE [None]
  - OEDEMA PERIPHERAL [None]
  - OSTEOPENIA [None]
  - PANIC ATTACK [None]
  - PATHOLOGICAL FRACTURE [None]
  - PROTEINURIA [None]
  - RENAL FAILURE [None]
  - RENAL FAILURE CHRONIC [None]
  - SCAN MYOCARDIAL PERFUSION [None]
  - SPINAL OSTEOARTHRITIS [None]
  - STRESS FRACTURE [None]
  - SYNOVIAL CYST [None]
  - THERAPEUTIC PROCEDURE [None]
  - URINARY TRACT INFECTION [None]
  - VENTRICULAR EXTRASYSTOLES [None]
  - VERTIGO [None]
  - WEIGHT DECREASED [None]
